FAERS Safety Report 8483558-5 (Version None)
Quarter: 2012Q3

REPORT INFORMATION
  Report Type: 
  Country: None (occurrence: None)
  Receive Date: 20120702
  Receipt Date: 20120628
  Transmission Date: 20120928
  Serious: Yes (Hospitalization)
  Sender: FDA-Public Use
  Company Number: GB-MERCK-1206USA05503

PATIENT
  Age: 54 Year
  Sex: Male
  Weight: 86 kg

DRUGS (12)
  1. MYCOPHENOLATE MOFETIL [Concomitant]
     Route: 065
  2. PENICILLIN V [Concomitant]
     Route: 065
  3. TRIMOXAZOLE [Concomitant]
     Route: 065
  4. ZOCOR [Suspect]
     Indication: BLOOD CHOLESTEROL INCREASED
     Route: 048
     Dates: start: 20120515, end: 20120515
  5. ZOCOR [Suspect]
     Indication: BLOOD TRIGLYCERIDES INCREASED
     Route: 048
     Dates: start: 20120515, end: 20120515
  6. PREDNISOLONE [Concomitant]
     Route: 065
  7. DILTIAZEM HCL [Concomitant]
     Route: 065
  8. CYCLOSPORINE [Concomitant]
     Route: 065
  9. QUININE SULFATE [Concomitant]
     Route: 065
  10. OMEPRAZOLE [Concomitant]
     Route: 065
  11. ITRACONAZOLE [Concomitant]
     Route: 065
  12. ACYCLOVIR [Concomitant]
     Route: 065

REACTIONS (4)
  - CHROMATURIA [None]
  - RHABDOMYOLYSIS [None]
  - HYPOKINESIA [None]
  - MYALGIA [None]
